FAERS Safety Report 24567478 (Version 3)
Quarter: 2024Q4

REPORT INFORMATION
  Report Type: Spontaneous
  Country: US (occurrence: US)
  Receive Date: 20241030
  Receipt Date: 20241127
  Transmission Date: 20250115
  Serious: No
  Sender: AMGEN
  Company Number: US-AMGEN-USASP2024211173

PATIENT
  Age: 63 Year
  Sex: Male

DRUGS (6)
  1. OTEZLA [Suspect]
     Active Substance: APREMILAST
     Indication: Psoriasis
     Dosage: 10 MILLIGRAM, QD
     Route: 048
     Dates: start: 20240821
  2. OTEZLA [Suspect]
     Active Substance: APREMILAST
     Dosage: 10 MILLIGRAM, BID
     Route: 048
     Dates: start: 20240822
  3. OTEZLA [Suspect]
     Active Substance: APREMILAST
     Dosage: 10 MG AM AND 20 MG PM
     Route: 048
     Dates: start: 20240823
  4. OTEZLA [Suspect]
     Active Substance: APREMILAST
     Dosage: 20 MILLIGRAM, BID
     Route: 048
     Dates: start: 20240824
  5. OTEZLA [Suspect]
     Active Substance: APREMILAST
     Dosage: 20 MG AM AND 30 MG PM
     Route: 048
     Dates: start: 20240825
  6. OTEZLA [Suspect]
     Active Substance: APREMILAST
     Dosage: 30 MILLIGRAM, BID
     Route: 048
     Dates: start: 20240826, end: 2024

REACTIONS (6)
  - Headache [Unknown]
  - Diarrhoea [Not Recovered/Not Resolved]
  - Psoriasis [Unknown]
  - Discomfort [Not Recovered/Not Resolved]
  - Abdominal discomfort [Unknown]
  - Eating disorder [Unknown]

NARRATIVE: CASE EVENT DATE: 20240101
